FAERS Safety Report 4354600-8 (Version None)
Quarter: 2004Q2

REPORT INFORMATION
  Report Type: 
  Country: None (occurrence: None)
  Receive Date: 20040503
  Receipt Date: 20040423
  Transmission Date: 20050107
  Serious: Yes (Other)
  Sender: FDA-Public Use
  Company Number: GB-JNJFOC-20040405485

PATIENT
  Age: 15 Year
  Sex: Female
  Weight: 79 kg

DRUGS (1)
  1. TOPAMAX [Suspect]
     Indication: EPILEPSY
     Dosage: ORAL
     Route: 048
     Dates: start: 20030901, end: 20040301

REACTIONS (5)
  - BLINDNESS [None]
  - IRITIS [None]
  - OPTIC NERVE DISORDER [None]
  - PAPILLITIS [None]
  - SCLERITIS [None]
